FAERS Safety Report 9746545 (Version 1)
Quarter: 2013Q4

REPORT INFORMATION
  Report Type: Spontaneous
  Country: US (occurrence: None)
  Receive Date: 20131205
  Receipt Date: 20131205
  Transmission Date: 20140711
  Serious: Yes (Hospitalization)
  Sender: FDA-Public Use
  Company Number: DSU-2013-05242

PATIENT
  Age: 59 Year
  Sex: Male

DRUGS (1)
  1. OLMESARTAN MEDOXOMIL [Suspect]
     Indication: HYPERTENSION
     Route: 048

REACTIONS (7)
  - Diarrhoea [None]
  - Malabsorption [None]
  - Renal failure acute [None]
  - Dialysis [None]
  - Colitis [None]
  - Hypotension [None]
  - Coeliac disease [None]
